FAERS Safety Report 17249917 (Version 3)
Quarter: 2020Q1

REPORT INFORMATION
  Report Type: Report from Study
  Country: US (occurrence: US)
  Receive Date: 20200109
  Receipt Date: 20200210
  Transmission Date: 20200409
  Serious: Yes (Death, Hospitalization)
  Sender: FDA-Public Use
  Company Number: US-ROCHE-2516901

PATIENT
  Age: 75 Year
  Sex: Male
  Weight: 90.3 kg

DRUGS (1)
  1. ATEZOLIZUMAB. [Suspect]
     Active Substance: ATEZOLIZUMAB
     Indication: GENITOURINARY TRACT NEOPLASM
     Dosage: CYCLE = 21 DAYS (MAX=17 CYCLES); OVER 60 MINUTES ON DAY 1
     Route: 042
     Dates: start: 20190410, end: 20191218

REACTIONS (1)
  - Escherichia infection [Fatal]

NARRATIVE: CASE EVENT DATE: 20191223
